FAERS Safety Report 4755295-1 (Version None)
Quarter: 2005Q3

REPORT INFORMATION
  Report Type: 
  Country: None (occurrence: None)
  Receive Date: 20050829
  Receipt Date: 20050819
  Transmission Date: 20060218
  Serious: Yes (Hospitalization)
  Sender: FDA-Public Use
  Company Number: US-MERCK-0508USA03382

PATIENT
  Age: 50 Year
  Sex: Female

DRUGS (5)
  1. VIOXX [Suspect]
     Indication: BACK PAIN
     Route: 048
  2. LIPITOR [Concomitant]
     Route: 065
  3. EFFEXOR [Concomitant]
     Route: 065
  4. LASIX [Concomitant]
     Route: 065
  5. POTASSIUM (UNSPECIFIED) [Concomitant]
     Route: 065

REACTIONS (1)
  - CEREBROVASCULAR ACCIDENT [None]
